FAERS Safety Report 22956298 (Version 2)
Quarter: 2023Q4

REPORT INFORMATION
  Report Type: Spontaneous
  Country: US (occurrence: US)
  Receive Date: 20230919
  Receipt Date: 20231101
  Transmission Date: 20240110
  Serious: Yes (Hospitalization, Other)
  Sender: FDA-Public Use
  Company Number: US-GLAXOSMITHKLINE-US2023GSK114505

PATIENT
  Age: 31 Year
  Sex: Female

DRUGS (1)
  1. ACETAMINOPHEN [Suspect]
     Active Substance: ACETAMINOPHEN
     Indication: Abdominal pain
     Dosage: 1 TO 2 G EVERY 4 TO 6 HOURS FOR 4 DAYS
     Route: 065

REACTIONS (6)
  - Diarrhoea [Recovering/Resolving]
  - Hepatomegaly [Unknown]
  - Hepatic steatosis [Unknown]
  - Pancreatitis [Recovering/Resolving]
  - Renal tubular injury [Recovering/Resolving]
  - Toxicity to various agents [Recovering/Resolving]
